FAERS Safety Report 21643123 (Version 2)
Quarter: 2023Q1

REPORT INFORMATION
  Report Type: Spontaneous
  Country: US (occurrence: US)
  Receive Date: 20221125
  Receipt Date: 20230102
  Transmission Date: 20230418
  Serious: No
  Sender: FDA-Public Use
  Company Number: US-BIOVITRUM-2022US13482

PATIENT
  Age: 35 Year
  Sex: Female

DRUGS (2)
  1. KINERET [Suspect]
     Active Substance: ANAKINRA
     Indication: Gastrointestinal inflammation
     Dosage: 400 MG SUBCUTANEOUS INJECTION IN AM, 300MG IN PM
     Dates: start: 20190419
  2. KINERET [Suspect]
     Active Substance: ANAKINRA
     Indication: Colitis

REACTIONS (5)
  - Gastrointestinal disorder [Unknown]
  - Pharyngeal swelling [Unknown]
  - Needle issue [Unknown]
  - Product dose omission issue [Unknown]
  - Off label use [Unknown]

NARRATIVE: CASE EVENT DATE: 20190419
